FAERS Safety Report 10736215 (Version 1)
Quarter: 2015Q1

REPORT INFORMATION
  Report Type: Spontaneous
  Country: US (occurrence: None)
  Receive Date: 20150121
  Receipt Date: 20150121
  Transmission Date: 20150721
  Serious: Yes (Hospitalization, Other)
  Sender: FDA-Public Use
  Company Number: NSR_01747_2015

PATIENT
  Age: 08 Year
  Sex: Male

DRUGS (2)
  1. BACLOFEN. [Suspect]
     Active Substance: BACLOFEN
     Indication: CEREBRAL PALSY
     Route: 037
  2. PHENOL. [Concomitant]
     Active Substance: PHENOL

REACTIONS (4)
  - Device breakage [None]
  - Priapism [None]
  - Drug withdrawal syndrome [None]
  - Underdose [None]
